FAERS Safety Report 5909594-8 (Version None)
Quarter: 2008Q4

REPORT INFORMATION
  Report Type: 
  Country: None (occurrence: None)
  Receive Date: 20081002
  Receipt Date: 20080922
  Transmission Date: 20090506
  Serious: No
  Sender: FDA-Public Use
  Company Number: 080147

PATIENT
  Age: 44 Year
  Sex: Male

DRUGS (8)
  1. HALFLYTELY [Suspect]
     Indication: COLONOSCOPY
     Dosage: 10MG/2L/1X/PO
     Route: 048
     Dates: start: 20080922
  2. COMPAZINE [Concomitant]
  3. INDOMETHIACIN [Concomitant]
  4. PREDNISONE [Concomitant]
  5. LEVOTHYROXINE SODIUM [Concomitant]
  6. OMEPRAZOLE [Concomitant]
  7. ALLOPURINOL [Concomitant]
  8. K.  CHLORIDE [Concomitant]

REACTIONS (1)
  - HAEMATEMESIS [None]
